FAERS Safety Report 20608343 (Version 1)
Quarter: 2022Q1

REPORT INFORMATION
  Report Type: Spontaneous
  Country: IT (occurrence: IT)
  Receive Date: 20220317
  Receipt Date: 20220317
  Transmission Date: 20220423
  Serious: Yes (Hospitalization)
  Sender: FDA-Public Use
  Company Number: IT-ABBVIE-22K-083-4318928-00

PATIENT
  Age: 72 Year
  Sex: Male

DRUGS (5)
  1. VALPROATE SODIUM [Suspect]
     Active Substance: VALPROATE SODIUM
     Indication: Bipolar disorder
     Route: 065
     Dates: start: 20200506, end: 20200507
  2. QUETIAPINE FUMARATE [Suspect]
     Active Substance: QUETIAPINE FUMARATE
     Indication: Bipolar disorder
     Route: 065
     Dates: start: 20200101, end: 20200507
  3. BENSERAZIDE HYDROCHLORIDE\LEVODOPA [Suspect]
     Active Substance: BENSERAZIDE HYDROCHLORIDE\LEVODOPA
     Indication: Bipolar disorder
     Route: 065
     Dates: start: 20200201, end: 20200507
  4. LASIX [Concomitant]
     Active Substance: FUROSEMIDE
     Indication: Product used for unknown indication
  5. EDOXABAN TOSYLATE [Concomitant]
     Active Substance: EDOXABAN TOSYLATE
     Indication: Product used for unknown indication

REACTIONS (5)
  - Renal impairment [Unknown]
  - Hyperammonaemia [Unknown]
  - Drug interaction [Unknown]
  - Psychomotor hyperactivity [Unknown]
  - Off label use [Unknown]

NARRATIVE: CASE EVENT DATE: 20200507
